FAERS Safety Report 4368778-3 (Version None)
Quarter: 2004Q2

REPORT INFORMATION
  Report Type: 
  Country: None (occurrence: None)
  Receive Date: 20040525
  Receipt Date: 20040519
  Transmission Date: 20050107
  Serious: Yes (Death, Congenital Anomaly, Other)
  Sender: FDA-Public Use
  Company Number: 237146

PATIENT

DRUGS (1)
  1. NOVORAPID PENFILL 3 ML (INSULIN ASPART) [Suspect]
     Indication: DIABETES MELLITUS INSULIN-DEPENDENT
     Dosage: IU, INTRAUTERINE
     Route: 015
     Dates: start: 20031107

REACTIONS (4)
  - COMPLICATION OF DELIVERY [None]
  - COMPLICATIONS OF MATERNAL EXPOSURE TO THERAPEUTIC DRUGS [None]
  - MATERNAL DRUGS AFFECTING FOETUS [None]
  - PERINATAL BRAIN DAMAGE [None]
